FAERS Safety Report 6599976-6 (Version None)
Quarter: 2010Q1

REPORT INFORMATION
  Report Type: 
  Country: None (occurrence: None)
  Receive Date: 20100224
  Receipt Date: 20100222
  Transmission Date: 20100710
  Serious: Yes (Hospitalization)
  Sender: FDA-Public Use
  Company Number: FR-SANOFI-AVENTIS-2010SA010226

PATIENT
  Age: 63 Year
  Sex: Female

DRUGS (19)
  1. TAXOTERE [Suspect]
     Route: 042
     Dates: start: 20091130, end: 20091130
  2. TAXOTERE [Suspect]
     Route: 042
     Dates: start: 20091130, end: 20091130
  3. KYTRIL [Concomitant]
     Indication: PREMEDICATION
     Dates: start: 20091130
  4. SOLU-MEDROL [Concomitant]
     Indication: PREMEDICATION
     Dates: start: 20091130
  5. TRANXENE [Concomitant]
     Indication: PREMEDICATION
     Dates: start: 20091130
  6. LARGACTIL [Concomitant]
     Indication: PREMEDICATION
     Dates: start: 20091130
  7. RANITIDINE HCL [Concomitant]
     Indication: PREMEDICATION
     Dates: start: 20091130
  8. POLARAMINE [Concomitant]
     Indication: PREMEDICATION
     Dates: start: 20091130
  9. PREDNISOLONE [Concomitant]
     Indication: PREMEDICATION
     Dates: start: 20091130
  10. SERETIDE DISKUS [Concomitant]
  11. MEPRONIZINE [Concomitant]
  12. PENTOXIFYLLINE [Concomitant]
  13. CAFFEINE/DEXTROPROPOXYPHENE/PARACETAMOL [Concomitant]
  14. DOLIPRANE [Concomitant]
  15. PLAVIX [Concomitant]
  16. AMLODIPINE/VALSARTAN [Concomitant]
  17. FIXICAL VITAMINE D3 [Concomitant]
  18. PIASCLEDINE [Concomitant]
  19. ZOLPIDEM [Concomitant]

REACTIONS (2)
  - ILIAC ARTERY STENOSIS [None]
  - PERIPHERAL ISCHAEMIA [None]
